FAERS Safety Report 19809761 (Version 1)
Quarter: 2021Q3

REPORT INFORMATION
  Report Type: Spontaneous
  Country: US (occurrence: US)
  Receive Date: 20210908
  Receipt Date: 20210908
  Transmission Date: 20211014
  Serious: Yes (Other)
  Sender: FDA-Public Use
  Company Number: US-ROCHE-2669641

PATIENT
  Sex: Male
  Weight: 81.72 kg

DRUGS (1)
  1. ALECENSA [Suspect]
     Active Substance: ALECTINIB HYDROCHLORIDE
     Indication: LUNG NEOPLASM MALIGNANT
     Dosage: 4 PILLS IN THE MORNING AND 4 PILLS IN THE EVENING, ONGOING: YES
     Route: 065

REACTIONS (2)
  - Bradycardia [Unknown]
  - Product packaging issue [Unknown]
